FAERS Safety Report 9092563 (Version 1)
Quarter: 2013Q1

REPORT INFORMATION
  Report Type: Report from Study
  Country: US (occurrence: US)
  Receive Date: 20130218
  Receipt Date: 20130218
  Transmission Date: 20140127
  Serious: No
  Sender: FDA-Public Use
  Company Number: US-ABBOTT-12P-163-1007486-00

PATIENT
  Age: 64 Year
  Sex: Female

DRUGS (1)
  1. SIMCOR [Suspect]
     Indication: PRODUCT USED FOR UNKNOWN INDICATION
     Dates: start: 201210

REACTIONS (6)
  - Anxiety [Recovering/Resolving]
  - Flushing [Recovering/Resolving]
  - Paraesthesia [Recovering/Resolving]
  - Feeling hot [Recovering/Resolving]
  - Dyspnoea [Recovering/Resolving]
  - Chest discomfort [Recovering/Resolving]
